FAERS Safety Report 4360416-9 (Version None)
Quarter: 2004Q2

REPORT INFORMATION
  Report Type: 
  Country: None (occurrence: None)
  Receive Date: 20040514
  Receipt Date: 20040510
  Transmission Date: 20050107
  Serious: Yes (Death)
  Sender: FDA-Public Use
  Company Number: TIF2004A00022

PATIENT
  Age: 77 Year
  Sex: Male

DRUGS (8)
  1. LEUPROLIDE ACETATE [Suspect]
     Indication: PROSTATE CANCER
     Dosage: 3.75 MG, 1 IN 28 D
     Dates: start: 20021016, end: 20040121
  2. FLUTAMIDE [Suspect]
     Indication: PROSTATE CANCER
     Dosage: 1 IN 1 D
     Dates: start: 20021016, end: 20040121
  3. JUMEX (SELEGILINE) [Concomitant]
  4. DILCEREN [Concomitant]
  5. SORBIMON (ISOSORBIDE MONONITRATE) [Concomitant]
  6. TRENTAL [Concomitant]
  7. ARELVERT [Concomitant]
  8. ENALAPRIL MALEATE [Concomitant]

REACTIONS (1)
  - CEREBROVASCULAR DISORDER [None]
